FAERS Safety Report 7201313-0 (Version None)
Quarter: 2010Q4

REPORT INFORMATION
  Report Type: 
  Country: None (occurrence: None)
  Receive Date: 20101227
  Receipt Date: 20101227
  Transmission Date: 20110411
  Serious: Yes (Other)
  Sender: FDA-Public Use
  Company Number: None

PATIENT
  Age: 47 Year
  Sex: Male
  Weight: 120.2032 kg

DRUGS (2)
  1. DEPAKOTE [Suspect]
     Indication: BIPOLAR DISORDER
     Dosage: DAILY ONCE DAILY
     Dates: start: 19990101, end: 20060101
  2. ZYPREXA [Concomitant]

REACTIONS (1)
  - BREAST ENLARGEMENT [None]
